FAERS Safety Report 16967631 (Version 1)
Quarter: 2019Q4

REPORT INFORMATION
  Report Type: Spontaneous
  Country: BR (occurrence: BR)
  Receive Date: 20191028
  Receipt Date: 20191028
  Transmission Date: 20200122
  Serious: Yes (Other)
  Sender: FDA-Public Use
  Company Number: BR-JNJFOC-20191028472

PATIENT
  Sex: Male

DRUGS (1)
  1. IMBRUVICA [Suspect]
     Active Substance: IBRUTINIB
     Indication: CHRONIC LYMPHOCYTIC LEUKAEMIA
     Route: 048
     Dates: start: 201905

REACTIONS (5)
  - Rash erythematous [Unknown]
  - Ulcer [Unknown]
  - Platelet count decreased [Unknown]
  - Angioedema [Unknown]
  - Leukocytosis [Unknown]

NARRATIVE: CASE EVENT DATE: 2019
